FAERS Safety Report 5443460-X (Version None)
Quarter: 2007Q3

REPORT INFORMATION
  Report Type: 
  Country: None (occurrence: None)
  Receive Date: 20070831
  Receipt Date: 20070823
  Transmission Date: 20080115
  Serious: Yes (Hospitalization)
  Sender: FDA-Public Use
  Company Number: 2007BI013663

PATIENT
  Age: 44 Year
  Sex: Female

DRUGS (9)
  1. AVONEX [Suspect]
     Indication: MULTIPLE SCLEROSIS
     Dosage: IM
     Route: 030
     Dates: start: 20000101, end: 20000101
  2. AVONEX [Suspect]
     Indication: MULTIPLE SCLEROSIS
     Dosage: 30 UG; QW; IM
     Route: 030
     Dates: start: 20070301
  3. ZOLOFT [Concomitant]
  4. PROTONIX [Concomitant]
  5. AGGRENOX [Concomitant]
  6. TYLENOL (CAPLET) [Concomitant]
  7. ZONEGRAN [Concomitant]
  8. PROMETHAZINE [Concomitant]
  9. GABAPENTIN [Concomitant]

REACTIONS (12)
  - ABASIA [None]
  - ABDOMINAL DISCOMFORT [None]
  - BALANCE DISORDER [None]
  - COMMUNICATION DISORDER [None]
  - FATIGUE [None]
  - GAIT DISTURBANCE [None]
  - HYPOAESTHESIA [None]
  - INFLUENZA LIKE ILLNESS [None]
  - MICTURITION URGENCY [None]
  - NAUSEA [None]
  - OBESITY [None]
  - PARTIAL SEIZURES [None]
